FAERS Safety Report 18764198 (Version 3)
Quarter: 2021Q2

REPORT INFORMATION
  Report Type: Spontaneous
  Country: US (occurrence: US)
  Receive Date: 20210120
  Receipt Date: 20210430
  Transmission Date: 20210717
  Serious: Yes (Hospitalization)
  Sender: FDA-Public Use
  Company Number: US-TAKEDA-US202031737

PATIENT
  Sex: Female

DRUGS (8)
  1. GATTEX [Suspect]
     Active Substance: TEDUGLUTIDE\WATER
     Indication: SHORT-BOWEL SYNDROME
     Dosage: 0.374 MILLIGRAM, 1X/DAY:QD
     Route: 050
     Dates: start: 20200804
  2. GATTEX [Suspect]
     Active Substance: TEDUGLUTIDE\WATER
     Indication: SHORT-BOWEL SYNDROME
     Dosage: 0.374 MILLIGRAM, 1X/DAY:QD
     Route: 050
     Dates: start: 20200804
  3. GATTEX [Suspect]
     Active Substance: TEDUGLUTIDE\WATER
     Dosage: 0.374 MILLIGRAM, QD
     Route: 058
     Dates: start: 202008
  4. GATTEX [Suspect]
     Active Substance: TEDUGLUTIDE\WATER
     Dosage: 0.374 MILLIGRAM, QD
     Route: 058
     Dates: start: 202008
  5. GATTEX [Suspect]
     Active Substance: TEDUGLUTIDE\WATER
     Indication: SHORT-BOWEL SYNDROME
     Dosage: 0.374 MILLIGRAM, 1X/DAY:QD
     Route: 050
     Dates: start: 20200804
  6. GATTEX [Suspect]
     Active Substance: TEDUGLUTIDE\WATER
     Indication: SHORT-BOWEL SYNDROME
     Dosage: 0.374 MILLIGRAM, 1X/DAY:QD
     Route: 050
     Dates: start: 20200804
  7. GATTEX [Suspect]
     Active Substance: TEDUGLUTIDE\WATER
     Dosage: 0.374 MILLIGRAM, QD
     Route: 058
     Dates: start: 202008
  8. GATTEX [Suspect]
     Active Substance: TEDUGLUTIDE\WATER
     Dosage: 0.374 MILLIGRAM, QD
     Route: 058
     Dates: start: 202008

REACTIONS (5)
  - Therapy interrupted [Unknown]
  - Weight decreased [Unknown]
  - Urinary tract infection [Unknown]
  - Abdominal pain [Unknown]
  - Fistula [Unknown]
